FAERS Safety Report 6407027-9 (Version None)
Quarter: 2009Q4

REPORT INFORMATION
  Report Type: 
  Country: None (occurrence: None)
  Receive Date: 20091020
  Receipt Date: 20091009
  Transmission Date: 20100525
  Serious: Yes (Life-Threatening, Hospitalization, Other)
  Sender: FDA-Public Use
  Company Number: FR-PFIZER INC-2009283798

PATIENT
  Age: 41 Year

DRUGS (6)
  1. HYDROXYZINE HCL [Suspect]
     Indication: ANAESTHESIA
     Dosage: 50 MG, ONCE
     Route: 048
     Dates: start: 20090925, end: 20090925
  2. OMEPRAZOLE [Suspect]
     Indication: ANAESTHESIA
     Dosage: 20 MG, ONCE
     Route: 048
     Dates: start: 20090925, end: 20090925
  3. SUFENTANIL [Suspect]
     Indication: ANAESTHESIA
     Dosage: 30 MG, ONCE
     Route: 042
     Dates: start: 20090925, end: 20090925
  4. CISATRACURIUM BESILATE [Suspect]
     Indication: ANAESTHESIA
     Dosage: 8 MG, ONCE
     Route: 042
     Dates: start: 20090925, end: 20090925
  5. POVIDONE-IODINE [Concomitant]
     Dosage: UNK
     Dates: start: 20090925, end: 20090925
  6. PROPOFOL [Concomitant]
     Indication: INDUCTION OF ANAESTHESIA
     Dosage: UNK
     Dates: start: 20090925, end: 20090925

REACTIONS (8)
  - ABDOMINAL PAIN [None]
  - ACUTE PULMONARY OEDEMA [None]
  - CARDIOGENIC SHOCK [None]
  - HYPOKALAEMIA [None]
  - LACTIC ACIDOSIS [None]
  - MALAISE [None]
  - TORSADE DE POINTES [None]
  - VENTRICULAR TACHYCARDIA [None]
